FAERS Safety Report 4297323-6 (Version None)
Quarter: 2004Q1

REPORT INFORMATION
  Report Type: 
  Country: None (occurrence: None)
  Receive Date: 20040213
  Receipt Date: 20040209
  Transmission Date: 20041129
  Serious: Yes (Hospitalization)
  Sender: FDA-Public Use
  Company Number: 200313550GDS

PATIENT
  Age: 74 Year
  Sex: Male
  Weight: 83 kg

DRUGS (10)
  1. ASPIRIN CARDIO (ACETYLSALICYLIC ACID) [Suspect]
     Indication: PERIPHERAL VASCULAR DISORDER
     Dosage: 100 MG, QD, ORAL
     Route: 048
  2. METHOTREXATE [Suspect]
     Indication: RHEUMATOID ARTHRITIS
     Dosage: 5 MG, BID, ORAL
     Route: 048
     Dates: start: 20000101, end: 20030101
  3. PREDNISONE [Concomitant]
  4. ANTRAMUPS [Concomitant]
  5. DICLOFENAC [Concomitant]
  6. COLIMORID MEPHA [Suspect]
     Dosage: QD, ORAL
     Route: 048
  7. CLAMOXYL (AMOXICILLINE TRIHYDRATE) [Suspect]
     Indication: OSTEOMYELITIS CHRONIC
     Dosage: 750 MG, TID, ORAL
     Route: 048
  8. OLYBANUM BOSWELLIA (ANTIINFLAMMATORY/ANTIRHEUMATIC PRODUCTS) [Suspect]
     Indication: POLYARTHRITIS
     Dosage: ORAL
     Route: 048
  9. OLYBANUM BOSWELLIA (ANTIINFLAMMATORY/ANTIRHEUMATIC PRODUCTS) [Suspect]
     Indication: RHEUMATOID ARTHRITIS
     Dosage: ORAL
     Route: 048
  10. KALIUM [Concomitant]

REACTIONS (11)
  - BONE MARROW DEPRESSION [None]
  - DRUG INTERACTION [None]
  - DRUG LEVEL INCREASED [None]
  - GINGIVAL BLEEDING [None]
  - MARKEDLY REDUCED DIETARY INTAKE [None]
  - MYELODYSPLASTIC SYNDROME [None]
  - ODYNOPHAGIA [None]
  - ORAL PAIN [None]
  - OVERDOSE [None]
  - PANCYTOPENIA [None]
  - SHIFT TO THE LEFT [None]
